FAERS Safety Report 8514511-0 (Version None)
Quarter: 2012Q3

REPORT INFORMATION
  Report Type: 
  Country: None (occurrence: None)
  Receive Date: 20120717
  Receipt Date: 20120706
  Transmission Date: 20120928
  Serious: Yes (Hospitalization)
  Sender: FDA-Public Use
  Company Number: CA-PFIZER INC-2012007334

PATIENT
  Age: 86 Year
  Sex: Male

DRUGS (7)
  1. PANTOPRAZOLE [Suspect]
     Dosage: 40 MG, 1X/DAY
     Route: 048
     Dates: end: 20110820
  2. AMIODARONE [Concomitant]
     Dosage: 200 MG, UNK
     Route: 048
     Dates: end: 20110820
  3. PANTOPRAZOLE SODIUM [Suspect]
     Indication: GASTROINTESTINAL HAEMORRHAGE
     Dosage: 40 MG, 1X/DAY
     Route: 048
     Dates: end: 20110820
  4. RAMIPRIL [Concomitant]
     Dosage: UNK
     Dates: end: 20110823
  5. HYDROCHLOROTHIAZIDE [Concomitant]
     Dosage: 12.5 MG, UNK
     Route: 048
     Dates: end: 20110822
  6. PRADAXA [Concomitant]
     Dosage: UNK
     Dates: end: 20110822
  7. POTASSIUM CHLORIDE [Concomitant]
     Dosage: 8 MILLIEQUIVALENTS
     Route: 048

REACTIONS (4)
  - ASTHENIA [None]
  - RASH MACULAR [None]
  - MELAENA [None]
  - VOMITING [None]
